FAERS Safety Report 4555090-2 (Version None)
Quarter: 2005Q1

REPORT INFORMATION
  Report Type: 
  Country: None (occurrence: None)
  Receive Date: 20041228
  Receipt Date: 20040617
  Transmission Date: 20050727
  Serious: Yes (Other)
  Sender: FDA-Public Use
  Company Number: PHEH2004US04092

PATIENT
  Age: 73 Year
  Sex: Male

DRUGS (6)
  1. AREDIA [Suspect]
     Indication: MULTIPLE MYELOMA
     Dosage: 90 MG OVER 2 HOURS
     Dates: start: 20010214, end: 20030912
  2. MELPHALAN (MELPHALAN) [Concomitant]
  3. PREDNISONE [Concomitant]
  4. PROCHLORPERAZINE [Concomitant]
  5. FLOMAX [Concomitant]
  6. CYCLOPHOSPHAMIDE [Concomitant]

REACTIONS (1)
  - OSTEONECROSIS [None]
